FAERS Safety Report 5909560-2 (Version None)
Quarter: 2008Q4

REPORT INFORMATION
  Report Type: 
  Country: None (occurrence: None)
  Receive Date: 20081002
  Receipt Date: 20080917
  Transmission Date: 20090506
  Serious: Yes (Other)
  Sender: FDA-Public Use
  Company Number: 2008S1016986

PATIENT
  Age: 53 Year
  Sex: Female

DRUGS (2)
  1. DOXYCYCLINE [Suspect]
     Indication: MEIBOMIANITIS
     Dosage: 100 MG; DAILY; ORAL
     Route: 048
     Dates: start: 20080606, end: 20080811
  2. FLOXACILLIN SODIUM [Concomitant]

REACTIONS (2)
  - ECZEMA [None]
  - PHOTOSENSITIVITY REACTION [None]
